FAERS Safety Report 5215002-5 (Version None)
Quarter: 2007Q1

REPORT INFORMATION
  Report Type: 
  Country: None (occurrence: None)
  Receive Date: 20070122
  Receipt Date: 20070116
  Transmission Date: 20070707
  Serious: Yes (Hospitalization)
  Sender: FDA-Public Use
  Company Number: FR-PFIZER INC-2006067299

PATIENT
  Age: 68 Year
  Sex: Male

DRUGS (9)
  1. TAHOR [Suspect]
     Route: 048
     Dates: start: 20060213, end: 20060220
  2. ENOXAPARIN SODIUM [Suspect]
     Route: 058
     Dates: start: 20060213, end: 20060217
  3. CARVEDILOL [Suspect]
     Route: 048
     Dates: start: 20060213, end: 20060220
  4. PERINDOPRIL ERBUMINE [Suspect]
     Route: 048
     Dates: start: 20060213, end: 20060220
  5. IODIXANOL [Concomitant]
     Route: 042
     Dates: start: 20060216, end: 20060216
  6. CLOPIDOGREL BISULFATE [Concomitant]
     Route: 048
  7. ASPIRIN [Concomitant]
  8. EPTIFIBATIDE [Concomitant]
     Dates: start: 20060215, end: 20060216
  9. CETIRIZINE HCL [Concomitant]
     Dates: start: 20060216, end: 20060218

REACTIONS (3)
  - EOSINOPHILIA [None]
  - PRURITUS [None]
  - RASH MACULO-PAPULAR [None]
